FAERS Safety Report 22198329 (Version 1)
Quarter: 2023Q2

REPORT INFORMATION
  Report Type: Spontaneous
  Country: US (occurrence: None)
  Receive Date: 20230411
  Receipt Date: 20230411
  Transmission Date: 20230721
  Serious: Yes (Hospitalization)
  Sender: FDA-Public Use
  Company Number: None

PATIENT
  Age: 59 Year
  Sex: Male

DRUGS (3)
  1. JAKAFI [Suspect]
     Active Substance: RUXOLITINIB
     Indication: Acute graft versus host disease
     Dosage: FREQUENCY : TWICE A DAY;?
     Route: 048
     Dates: start: 20220211
  2. FLUCONAZOLE [Concomitant]
     Active Substance: FLUCONAZOLE
  3. TACROLIMUS [Concomitant]
     Active Substance: TACROLIMUS

REACTIONS (6)
  - Transient ischaemic attack [None]
  - Infarction [None]
  - Headache [None]
  - Aphasia [None]
  - Disturbance in attention [None]
  - Therapy change [None]

NARRATIVE: CASE EVENT DATE: 20230411
